FAERS Safety Report 5573569-1 (Version None)
Quarter: 2007Q4

REPORT INFORMATION
  Report Type: 
  Country: None (occurrence: None)
  Receive Date: 20071220
  Receipt Date: 20071211
  Transmission Date: 20080405
  Serious: Yes (Hospitalization, Other)
  Sender: FDA-Public Use
  Company Number: WAES 0712USA02739

PATIENT
  Age: 58 Year
  Sex: Female

DRUGS (2)
  1. CAP VORINOSTAT 100 MG [Suspect]
     Indication: NON-SMALL CELL LUNG CANCER
     Dosage: 200 MG/BID/PO
     Route: 048
     Dates: start: 20071024, end: 20071109
  2. VELCADE [Suspect]
     Indication: NON-SMALL CELL LUNG CANCER
     Dosage: 1.85 MG/WKY/IV
     Route: 042
     Dates: start: 20071024, end: 20071107

REACTIONS (3)
  - NAUSEA [None]
  - PLEURAL EFFUSION [None]
  - PNEUMONIA [None]
